FAERS Safety Report 6669066-2 (Version None)
Quarter: 2010Q2

REPORT INFORMATION
  Report Type: 
  Country: None (occurrence: None)
  Receive Date: 20100402
  Receipt Date: 20100321
  Transmission Date: 20101027
  Serious: Yes (Other)
  Sender: FDA-Public Use
  Company Number: GB-DEXPHARM-20100389

PATIENT
  Age: 59 Year
  Sex: Female

DRUGS (2)
  1. OMEPRAZOLE [Suspect]
     Indication: GASTROOESOPHAGEAL REFLUX DISEASE
     Dosage: DOSE: 20 MG MILLIGRAM(S) SEP. DOSAGES / INTERVAL: 1 IN 1 DAY ORAL
     Route: 048
     Dates: start: 20100101, end: 20100218
  2. DILTIAZEM HCL [Concomitant]

REACTIONS (3)
  - ANGIOEDEMA [None]
  - DRY MOUTH [None]
  - PARAESTHESIA ORAL [None]
